FAERS Safety Report 6341893-0 (Version None)
Quarter: 2009Q3

REPORT INFORMATION
  Report Type: 
  Country: None (occurrence: None)
  Receive Date: 20090903
  Receipt Date: 20090825
  Transmission Date: 20100115
  Serious: Yes (Hospitalization)
  Sender: FDA-Public Use
  Company Number: 2009EU000951

PATIENT
  Age: 4 Year
  Sex: Male

DRUGS (1)
  1. TACROLIMUS [Suspect]
     Indication: DERMATITIS ATOPIC
     Dosage: 0.03 %, PRN, TOPICAL
     Route: 061
     Dates: start: 20060701

REACTIONS (2)
  - CELLULITIS [None]
  - LIMB INJURY [None]
